FAERS Safety Report 16667399 (Version 1)
Quarter: 2019Q3

REPORT INFORMATION
  Report Type: Spontaneous
  Country: US (occurrence: US)
  Receive Date: 20190805
  Receipt Date: 20190805
  Transmission Date: 20191004
  Serious: Yes (Hospitalization)
  Sender: FDA-Public Use
  Company Number: US-STRIDES ARCOLAB LIMITED-2019SP006421

PATIENT
  Age: 56 Year
  Sex: Male
  Weight: 136 kg

DRUGS (7)
  1. LEVOTHYROXINE. [Concomitant]
     Active Substance: LEVOTHYROXINE
     Indication: PRODUCT USED FOR UNKNOWN INDICATION
     Dosage: 200 ?G, QD
     Route: 048
  2. EVEROLIMUS. [Interacting]
     Active Substance: EVEROLIMUS
     Indication: CLEAR CELL RENAL CELL CARCINOMA
     Dosage: 10 MG PER DAY
     Route: 048
  3. AMOXICILLIN. [Concomitant]
     Active Substance: AMOXICILLIN
     Indication: EVIDENCE BASED TREATMENT
     Dosage: 500 MG, BID
     Route: 048
  4. METOPROLOL SUCCINATE. [Concomitant]
     Active Substance: METOPROLOL SUCCINATE
     Indication: PRODUCT USED FOR UNKNOWN INDICATION
     Dosage: 25 MG, QD
     Route: 048
  5. CLARITHROMYCIN. [Suspect]
     Active Substance: CLARITHROMYCIN
     Indication: EVIDENCE BASED TREATMENT
     Dosage: 500 MG, BID
     Route: 048
  6. OMEPRAZOLE. [Concomitant]
     Active Substance: OMEPRAZOLE
     Indication: EVIDENCE BASED TREATMENT
     Dosage: 40 MG, QD
     Route: 048
  7. EVEROLIMUS. [Interacting]
     Active Substance: EVEROLIMUS
     Dosage: 5 MG PER DAY
     Route: 048

REACTIONS (7)
  - Acute kidney injury [Recovered/Resolved]
  - Oedema peripheral [Recovered/Resolved]
  - Hyperkalaemia [Recovered/Resolved]
  - Drug interaction [Recovered/Resolved]
  - Proteinuria [Recovered/Resolved]
  - Fatigue [Recovered/Resolved]
  - Drug level increased [Recovered/Resolved]
